FAERS Safety Report 5800220-5 (Version None)
Quarter: 2008Q3

REPORT INFORMATION
  Report Type: 
  Country: None (occurrence: None)
  Receive Date: 20080703
  Receipt Date: 20080623
  Transmission Date: 20090109
  Serious: Yes (Death, Other)
  Sender: FDA-Public Use
  Company Number: CA-ELI_LILLY_AND_COMPANY-CA200805006203

PATIENT
  Age: 60 Year
  Sex: Male
  Weight: 74 kg

DRUGS (8)
  1. XIGRIS [Suspect]
     Indication: SEPSIS
     Dosage: 20 MG, UNKNOWN
     Route: 042
     Dates: start: 20080515, end: 20080516
  2. AZITHROMYCIN [Concomitant]
     Dates: start: 20080513, end: 20080517
  3. CEFTRIAXONE [Concomitant]
     Dates: start: 20080514
  4. DOPAMINE HCL [Concomitant]
     Dates: start: 20080514
  5. VASOPRESSIN [Concomitant]
     Dates: start: 20080514
  6. MIDAZOLAM HCL [Concomitant]
     Dates: start: 20080514
  7. RANITIDINE HCL [Concomitant]
     Dates: start: 20080514
  8. TIZANIDINE HCL [Concomitant]
     Dates: start: 20080514

REACTIONS (3)
  - RENAL FAILURE ACUTE [None]
  - SEPSIS [None]
  - UNRESPONSIVE TO STIMULI [None]
